FAERS Safety Report 10077402 (Version 2)
Quarter: 2014Q2

REPORT INFORMATION
  Report Type: Spontaneous
  Country: US (occurrence: US)
  Receive Date: 20140414
  Receipt Date: 20140414
  Transmission Date: 20141212
  Serious: No
  Sender: FDA-Public Use
  Company Number: US-BANPHARM-20131480

PATIENT
  Age: 86 Year
  Sex: Female
  Weight: 79.83 kg

DRUGS (5)
  1. ALEVE LIQUID GELS 220 MG [Suspect]
     Dosage: 1 DF, BID,
     Route: 048
     Dates: start: 2011
  2. GLUCOSAMINE MSM [Concomitant]
  3. VITAMIN C+D [Concomitant]
  4. MAGNESIUM [Concomitant]
  5. CALCIUM [Concomitant]

REACTIONS (2)
  - Alopecia [Not Recovered/Not Resolved]
  - Incorrect drug administration duration [Unknown]
